FAERS Safety Report 5888751-3 (Version None)
Quarter: 2008Q3

REPORT INFORMATION
  Report Type: 
  Country: None (occurrence: None)
  Receive Date: 20080917
  Receipt Date: 20080909
  Transmission Date: 20090109
  Serious: Yes (Death)
  Sender: FDA-Public Use
  Company Number: 2008US002350

PATIENT
  Age: 49 Year
  Sex: Female

DRUGS (1)
  1. AMBISOME [Suspect]
     Indication: CRYPTOCOCCOSIS

REACTIONS (1)
  - DEATH [None]
